FAERS Safety Report 5205635-4 (Version None)
Quarter: 2007Q1

REPORT INFORMATION
  Report Type: 
  Country: None (occurrence: None)
  Receive Date: 20070105
  Receipt Date: 20070105
  Transmission Date: 20070707
  Serious: Yes (Hospitalization)
  Sender: FDA-Public Use
  Company Number: None

PATIENT
  Age: 84 Year
  Sex: Female
  Weight: 63.6 kg

DRUGS (12)
  1. ENOXAPARIN SODIUM [Suspect]
     Indication: THROMBOSIS PROPHYLAXIS
     Dosage: 65 MG BID
     Dates: start: 20060629
  2. AMLODIPINE [Concomitant]
  3. ATENOLOL [Concomitant]
  4. HYDROCHLOROTHIAZIDE [Concomitant]
  5. CALCIUM CARBONATE [Concomitant]
  6. DOCUSATE [Concomitant]
  7. FERROUS SULFATE TAB [Concomitant]
  8. GLIPZIDE [Concomitant]
  9. LOSARTAN POTASSIUM [Concomitant]
  10. INSULIN GLARGINE [Concomitant]
  11. MORPHINE SULFATE [Concomitant]
  12. CEPHALEXIN [Concomitant]

REACTIONS (2)
  - CREATININE RENAL CLEARANCE DECREASED [None]
  - GASTROINTESTINAL HAEMORRHAGE [None]
